FAERS Safety Report 9711702 (Version 1)
Quarter: 2013Q4

REPORT INFORMATION
  Report Type: Spontaneous
  Country: US (occurrence: US)
  Receive Date: 20131126
  Receipt Date: 20131126
  Transmission Date: 20140711
  Serious: Yes (Hospitalization)
  Sender: FDA-Public Use
  Company Number: US-PFIZER INC-2013333405

PATIENT
  Age: 62 Year
  Sex: Male

DRUGS (4)
  1. METRONIDAZOLE [Suspect]
     Indication: HELICOBACTER GASTRITIS
     Dosage: 500 MG, 3X/DAY
  2. TETRACYCLINE HCL [Suspect]
     Indication: HELICOBACTER GASTRITIS
     Dosage: UNK
  3. BISMUTH [Suspect]
     Indication: HELICOBACTER GASTRITIS
     Dosage: UNK
  4. ESOMEPRAZOLE [Suspect]
     Indication: HELICOBACTER GASTRITIS
     Dosage: UNK

REACTIONS (1)
  - Clostridium difficile colitis [Recovered/Resolved]
